FAERS Safety Report 19141128 (Version 8)
Quarter: 2022Q2

REPORT INFORMATION
  Report Type: Report from Study
  Country: US (occurrence: US)
  Receive Date: 20210415
  Receipt Date: 20220623
  Transmission Date: 20220721
  Serious: Yes (Death)
  Sender: FDA-Public Use
  Company Number: US-AMGEN-USACT2021056598

PATIENT
  Age: 66 Year
  Sex: Male
  Weight: 88.9 kg

DRUGS (33)
  1. AMG-427 [Suspect]
     Active Substance: AMG-427
     Indication: Acute myeloid leukaemia
     Dosage: 72 MICROGRAM
     Route: 042
     Dates: start: 20210405
  2. ETANERCEPT [Suspect]
     Active Substance: ETANERCEPT
     Indication: Cytokine release syndrome
     Dosage: 50 MILLIGRAM
     Route: 058
     Dates: start: 20210403
  3. DIPHENHYDRAMINE [Concomitant]
     Active Substance: DIPHENHYDRAMINE
     Dosage: 12.5-50 MILLIGRAM
     Route: 042
     Dates: start: 20210327, end: 20210409
  4. ACETAMINOPHEN [Concomitant]
     Active Substance: ACETAMINOPHEN
     Dosage: 1 GRAM, 650 MILLIGRAM
     Route: 048
     Dates: start: 20210326
  5. DOCUSATE SODIUM [Concomitant]
     Active Substance: DOCUSATE SODIUM
     Dosage: 100 MILLIGRAM
     Route: 048
     Dates: start: 20210329, end: 20210329
  6. FAMOTIDINE [Concomitant]
     Active Substance: FAMOTIDINE
     Dosage: 20 MILLIGRAM
     Route: 042
     Dates: start: 20210325, end: 20210409
  7. FUROSEMIDE [Concomitant]
     Active Substance: FUROSEMIDE
     Dosage: 20-80 MILLIGRAM
     Route: 042
     Dates: start: 20210402, end: 20210409
  8. INSULIN NOS [Concomitant]
     Active Substance: INSULIN NOS
     Dosage: 1 UNK
     Route: 050
     Dates: start: 20210325
  9. TOCILIZUMAB [Concomitant]
     Active Substance: TOCILIZUMAB
     Dosage: 380-780 MILLIGRAM
     Route: 042
     Dates: start: 20210405, end: 20210409
  10. JARDIANCE [Concomitant]
     Active Substance: EMPAGLIFLOZIN
     Dosage: 10 MILLIGRAM
     Route: 048
     Dates: start: 20201020
  11. LEVOTHYROXINE [Concomitant]
     Active Substance: LEVOTHYROXINE
     Dosage: 100 MICROGRAM
     Route: 048
     Dates: start: 20190708
  12. LOPERAMIDE [Concomitant]
     Active Substance: LOPERAMIDE
     Dosage: 2 MILLIGRAM
     Route: 048
     Dates: start: 20210406, end: 20210406
  13. LORAZEPAM [Concomitant]
     Active Substance: LORAZEPAM
     Dosage: 0.5 MILLIGRAM
     Route: 042
     Dates: start: 20210402, end: 20210409
  14. MORPHINE [Concomitant]
     Active Substance: MORPHINE
     Dosage: 2-6 MILLIGRAM
     Route: 042
     Dates: start: 20210328, end: 20210410
  15. MOXIFLOXACIN [Concomitant]
     Active Substance: MOXIFLOXACIN
     Dosage: 400 MILLIGRAM
     Route: 048
     Dates: start: 20210322, end: 20210327
  16. ONDANSETRON [Concomitant]
     Active Substance: ONDANSETRON
     Dosage: 4-8 MILLIGRAM
     Route: 042
     Dates: start: 20210328, end: 20210331
  17. PANTOPRAZOLE [Concomitant]
     Active Substance: PANTOPRAZOLE
     Dosage: 40 MILLIGRAM
     Route: 042
     Dates: start: 20210405, end: 20210409
  18. PAROXETINE [Concomitant]
     Active Substance: PAROXETINE
     Dosage: 10 MILLIGRAM
     Route: 048
     Dates: start: 20200917
  19. ZOSYN [Concomitant]
     Active Substance: PIPERACILLIN SODIUM\TAZOBACTAM SODIUM
     Dosage: 4.5 GRAM
     Route: 042
     Dates: start: 20210328, end: 20210408
  20. PROCHLORPERAZINE [Concomitant]
     Active Substance: PROCHLORPERAZINE
     Dosage: 5-10 MILLIGRAM
     Route: 042
     Dates: start: 20210331, end: 20210406
  21. ALLOPURINOL [Concomitant]
     Active Substance: ALLOPURINOL
     Dosage: 300 MILLIGRAM
     Route: 048
     Dates: start: 20210406, end: 20210408
  22. TRANEXAMIC ACID [Concomitant]
     Active Substance: TRANEXAMIC ACID
     Dosage: 650 MILLIGRAM
     Route: 048
     Dates: start: 20210406, end: 20210408
  23. VALACYCLOVIR [Concomitant]
     Active Substance: VALACYCLOVIR HYDROCHLORIDE
     Dosage: 500 MILLIGRAM
     Route: 048
     Dates: start: 20200925
  24. VANCOMYCIN [Concomitant]
     Active Substance: VANCOMYCIN
     Dosage: 1 GRAM
     Route: 042
     Dates: start: 20210330, end: 20210330
  25. ALPRAZOLAM [Concomitant]
     Active Substance: ALPRAZOLAM
     Dosage: 0.5 MILLIGRAM
     Route: 048
     Dates: start: 20201006
  26. AMLODIPINE [Concomitant]
     Active Substance: AMLODIPINE BESYLATE
     Dosage: 5 MILLIGRAM
     Route: 048
     Dates: start: 20201012
  27. CHLORASEPTIC SORE THROAT [Concomitant]
     Active Substance: PHENOL
     Dosage: 1 UNK
     Route: 050
     Dates: start: 20210406, end: 20210407
  28. BISACODYL [Concomitant]
     Active Substance: BISACODYL
     Dosage: 5 MILLIGRAM
     Route: 048
     Dates: start: 20210330, end: 20210330
  29. CALCIUM CARBONATE [Concomitant]
     Active Substance: CALCIUM CARBONATE
     Dosage: 1 GRAM
     Route: 048
     Dates: start: 20210327, end: 20210402
  30. CHLORHEXIDINE [Concomitant]
     Active Substance: CHLORHEXIDINE
     Dosage: 0.12 UNK
     Route: 050
     Dates: start: 20210407, end: 20210408
  31. DEXAMETHASONE [Concomitant]
     Active Substance: DEXAMETHASONE
     Dosage: 8 MILLIGRAM
     Route: 042
     Dates: start: 20210405, end: 20210410
  32. HUMAN RED BLOOD CELL [Concomitant]
     Active Substance: HUMAN RED BLOOD CELL
     Dosage: 1 UNK
     Route: 042
     Dates: start: 20210322, end: 20210409
  33. PLATELETS [Concomitant]
     Active Substance: HUMAN PLATELET, ALLOGENIC
     Dosage: 1-2 UNK
     Route: 042
     Dates: start: 20210322, end: 20210409

REACTIONS (1)
  - Haemophagocytic lymphohistiocytosis [Fatal]

NARRATIVE: CASE EVENT DATE: 20210410
